FAERS Safety Report 5855614-9 (Version None)
Quarter: 2008Q3

REPORT INFORMATION
  Report Type: 
  Country: None (occurrence: None)
  Receive Date: 20080821
  Receipt Date: 20080806
  Transmission Date: 20090109
  Serious: Yes (Other)
  Sender: FDA-Public Use
  Company Number: 2008S1013460

PATIENT
  Age: 35 Year
  Sex: Male
  Weight: 80.332 kg

DRUGS (6)
  1. GUANFACINE HCL TABLET, USP [Suspect]
     Indication: ATTENTION DEFICIT/HYPERACTIVITY DISORDER
     Dosage: ORAL
     Route: 048
     Dates: start: 20080526
  2. PLACEBO [Suspect]
     Indication: ATTENTION DEFICIT/HYPERACTIVITY DISORDER
     Dosage: ORAL
     Route: 048
     Dates: start: 20080526
  3. MOXIFLOXACIN HYDROCHLORIDE [Suspect]
     Indication: ATTENTION DEFICIT/HYPERACTIVITY DISORDER
     Dosage: ORAL
     Route: 048
     Dates: start: 20080526
  4. METAMUCIL /00091301/ (CON.) [Concomitant]
  5. GOLYTELY /02508901/ (CON.) [Concomitant]
  6. DOSS /00080501/ (CON.) [Concomitant]

REACTIONS (9)
  - ABDOMINAL DISTENSION [None]
  - ABDOMINAL TENDERNESS [None]
  - CONSTIPATION [None]
  - DEHYDRATION [None]
  - GASTROINTESTINAL SOUNDS ABNORMAL [None]
  - PALLOR [None]
  - RESPIRATORY RATE INCREASED [None]
  - RETCHING [None]
  - VOMITING [None]
